FAERS Safety Report 7852408-X (Version None)
Quarter: 2011Q4

REPORT INFORMATION
  Report Type: 
  Country: None (occurrence: None)
  Receive Date: 20111026
  Receipt Date: 20111021
  Transmission Date: 20120403
  Serious: Yes (Death)
  Sender: FDA-Public Use
  Company Number: US-ASTRAZENECA-2011SE63934

PATIENT
  Age: 69 Year
  Sex: Female
  Weight: 61 kg

DRUGS (17)
  1. MERREM [Suspect]
     Indication: STAPHYLOCOCCAL INFECTION
     Dosage: 500 MILLIGRAM TOTAL DAILY DOSAGE, SIX HOURLY
     Route: 042
  2. ACETAMINOPHEN [Concomitant]
  3. LOTRAMINE [Concomitant]
  4. PREVACID [Concomitant]
  5. MULTI-VITAMINS [Concomitant]
  6. FLUCONASOLE [Concomitant]
  7. SERTRALINE HYDROCHLORIDE [Concomitant]
  8. VANGO [Concomitant]
     Route: 042
  9. ADUANEB [Concomitant]
  10. FLUMAX [Concomitant]
  11. GUAIFENESIN [Concomitant]
  12. FUROSEMIDE [Concomitant]
  13. CHLORHEXEDINE [Concomitant]
  14. ALOVINOX [Concomitant]
  15. LIDOCAINE HCL VISCOUS [Concomitant]
  16. ZANTAL [Concomitant]
  17. GABAPENTIN [Concomitant]

REACTIONS (1)
  - DEATH [None]
